FAERS Safety Report 6915232-8 (Version None)
Quarter: 2010Q3

REPORT INFORMATION
  Report Type: 
  Country: None (occurrence: None)
  Receive Date: 20100804
  Receipt Date: 20100804
  Transmission Date: 20110219
  Serious: No
  Sender: FDA-Public Use
  Company Number: None

PATIENT
  Age: 11 Year
  Sex: Male

DRUGS (1)
  1. DILANTIN [Suspect]
     Indication: EPILEPSY
     Dosage: 1QAM 2QPM DAILY
     Dates: start: 20020101

REACTIONS (1)
  - TREATMENT FAILURE [None]
